FAERS Safety Report 4906879-9 (Version None)
Quarter: 2006Q1

REPORT INFORMATION
  Report Type: 
  Country: None (occurrence: None)
  Receive Date: 20060207
  Receipt Date: 20060127
  Transmission Date: 20060701
  Serious: Yes (Hospitalization)
  Sender: FDA-Public Use
  Company Number: FR200601004729

PATIENT
  Sex: Female

DRUGS (1)
  1. GEMZAR [Suspect]
     Dosage: INTRAVENOUS
     Route: 042

REACTIONS (1)
  - ABDOMINAL PAIN [None]
